FAERS Safety Report 5415652-7 (Version None)
Quarter: 2007Q3

REPORT INFORMATION
  Report Type: 
  Country: None (occurrence: None)
  Receive Date: 20070815
  Receipt Date: 20070807
  Transmission Date: 20080115
  Serious: Yes (Death)
  Sender: FDA-Public Use
  Company Number: US-BAXTER-2007BH006878

PATIENT
  Age: 18 Year
  Sex: Male

DRUGS (9)
  1. MILRINONE [Suspect]
     Indication: DRUG USE FOR UNKNOWN INDICATION
     Route: 042
     Dates: start: 20070701, end: 20070701
  2. HEPARIN SODIUM 1,000 UNITS AND SODIUM CHLORIDE 0.9% [Suspect]
     Indication: DRUG USE FOR UNKNOWN INDICATION
     Route: 042
     Dates: start: 20070701, end: 20070701
  3. TAZICEF [Suspect]
     Indication: DRUG USE FOR UNKNOWN INDICATION
     Dosage: DOSE UNIT:UNKNOWN
     Route: 042
     Dates: start: 20070701, end: 20070701
  4. GENTAMICIN [Suspect]
     Indication: DRUG USE FOR UNKNOWN INDICATION
     Dosage: DOSE UNIT:UNKNOWN
     Route: 042
     Dates: start: 20070701, end: 20070701
  5. SULCONAZOLE [Suspect]
     Indication: DRUG USE FOR UNKNOWN INDICATION
     Route: 042
     Dates: start: 20070701, end: 20070701
  6. PEPCID [Suspect]
     Indication: DRUG USE FOR UNKNOWN INDICATION
     Dosage: DOSE UNIT:UNKNOWN
     Route: 042
     Dates: start: 20070701, end: 20070701
  7. VASOPRESSIN [Suspect]
     Indication: DRUG USE FOR UNKNOWN INDICATION
     Route: 042
     Dates: start: 20070701, end: 20070701
  8. EPINEPHRINE [Suspect]
     Indication: DRUG USE FOR UNKNOWN INDICATION
     Route: 042
     Dates: start: 20070701, end: 20070701
  9. NOREPINEPHRINE [Suspect]
     Indication: DRUG USE FOR UNKNOWN INDICATION
     Dosage: DOSE UNIT:UNKNOWN
     Route: 042
     Dates: start: 20070701, end: 20070701

REACTIONS (9)
  - AZOTAEMIA [None]
  - BLOOD PRESSURE DECREASED [None]
  - CATHETER SITE HAEMORRHAGE [None]
  - DEVICE FAILURE [None]
  - HEPATIC NECROSIS [None]
  - MULTI-ORGAN FAILURE [None]
  - PNEUMOTHORAX [None]
  - RENAL FAILURE [None]
  - SEPTIC SHOCK [None]
